FAERS Safety Report 9363178 (Version 1)
Quarter: 2013Q2

REPORT INFORMATION
  Report Type: Spontaneous
  Country: IT (occurrence: IT)
  Receive Date: 20130624
  Receipt Date: 20130624
  Transmission Date: 20140414
  Serious: Yes (Death, Hospitalization, Other)
  Sender: FDA-Public Use
  Company Number: IT-JNJFOC-20130609646

PATIENT
  Sex: 0

DRUGS (6)
  1. ABCIXIMAB [Suspect]
     Indication: PERCUTANEOUS CORONARY INTERVENTION
     Route: 042
  2. ABCIXIMAB [Suspect]
     Indication: PERCUTANEOUS CORONARY INTERVENTION
     Route: 042
  3. ASPIRIN [Suspect]
     Indication: PREMEDICATION
     Route: 042
  4. HEPARIN [Suspect]
     Indication: PREMEDICATION
     Route: 042
  5. TICLOPIDINE [Suspect]
     Indication: PROPHYLAXIS
     Route: 065
  6. ASPIRIN [Suspect]
     Indication: PROPHYLAXIS
     Route: 065

REACTIONS (3)
  - Death [Fatal]
  - Haemorrhage [Unknown]
  - Acute myocardial infarction [Unknown]
